FAERS Safety Report 7594348 (Version 3)
Quarter: 2012Q4

REPORT INFORMATION
  Report Type: Report from Study
  Country: KR (occurrence: KR)
  Receive Date: 20100919
  Receipt Date: 20121009
  Transmission Date: 20130627
  Serious: Yes (Hospitalization, Other)
  Sender: FDA-Public Use
  Company Number: PHHO2010KR13720

PATIENT
  Age: 23 Year
  Sex: Male
  Weight: 77.8 kg

DRUGS (14)
  1. NEORAL [Suspect]
     Indication: RENAL TRANSPLANT
     Dosage: 720 mg, BID
     Route: 048
     Dates: start: 20100812, end: 20100822
  2. ERL 080A [Suspect]
     Dosage: 360 mg, BID
     Route: 048
     Dates: start: 20100823
  3. NEORAL [Suspect]
     Indication: RENAL TRANSPLANT
     Dosage: 400 mg, QD
     Route: 048
     Dates: start: 20100810, end: 20100812
  4. NEORAL [Suspect]
     Dosage: 375 mg
     Route: 048
     Dates: start: 20100813, end: 20100813
  5. NEORAL [Suspect]
     Dosage: 350 mg
     Route: 048
     Dates: start: 20100814, end: 20100814
  6. NEORAL [Suspect]
     Dosage: 300 mg
     Route: 048
     Dates: start: 20100815, end: 20100815
  7. NEORAL [Suspect]
     Dosage: 250 mg
     Route: 048
     Dates: start: 20100816, end: 20100817
  8. NEORAL [Suspect]
     Dosage: 225 mg
     Route: 048
     Dates: start: 20100818, end: 20100818
  9. NEORAL [Suspect]
     Dosage: 200 mg
     Route: 048
     Dates: start: 20100819, end: 20100819
  10. NEORAL [Suspect]
     Dosage: 175 mg
     Route: 048
     Dates: start: 20100820, end: 20100820
  11. NEORAL [Suspect]
     Dosage: 200 mg
     Route: 048
     Dates: start: 20100821, end: 20100831
  12. NEORAL [Suspect]
     Dosage: 100 mg
     Route: 048
     Dates: start: 20100901, end: 20100901
  13. SIMULECT [Suspect]
     Indication: RENAL TRANSPLANT
  14. SOLU-MEDROL [Suspect]
     Indication: RENAL TRANSPLANT

REACTIONS (6)
  - Kidney transplant rejection [Not Recovered/Not Resolved]
  - Renal graft loss [Unknown]
  - Peritonitis bacterial [Recovered/Resolved]
  - Corynebacterium infection [Recovered/Resolved]
  - Urine output decreased [Not Recovered/Not Resolved]
  - Concomitant disease progression [Recovered/Resolved]
